FAERS Safety Report 9814819 (Version 1)
Quarter: 2014Q1

REPORT INFORMATION
  Report Type: Spontaneous
  Country: HR (occurrence: HR)
  Receive Date: 20140113
  Receipt Date: 20140113
  Transmission Date: 20141002
  Serious: Yes (Other)
  Sender: FDA-Public Use
  Company Number: PHHY2014HR001960

PATIENT
  Age: 54 Year
  Sex: Female
  Weight: 72 kg

DRUGS (1)
  1. KLIMICIN [Suspect]
     Indication: SINUSITIS
     Dosage: 300 MG, TID
     Route: 048
     Dates: start: 20131127, end: 20131129

REACTIONS (5)
  - Epigastric discomfort [Recovered/Resolved]
  - Flatulence [Recovered/Resolved]
  - Malaise [Recovered/Resolved]
  - Pharyngeal oedema [Recovered/Resolved]
  - Abdominal pain upper [Recovered/Resolved]
